FAERS Safety Report 18438342 (Version 1)
Quarter: 2020Q4

REPORT INFORMATION
  Report Type: Other
  Country: KR (occurrence: KR)
  Receive Date: 20201029
  Receipt Date: 20201029
  Transmission Date: 20210114
  Serious: Yes (Other)
  Sender: FDA-Public Use
  Company Number: KR-ROCHE-2702289

PATIENT

DRUGS (2)
  1. TIROFIBAN [Suspect]
     Active Substance: TIROFIBAN
     Indication: ISCHAEMIC STROKE
     Dosage: IA INFUSION OF TIROFIBAN WAS PERFORMED THROUGH MICROCATHETER NEAR THE OCCLUSION SITE. AN INITIAL BOL
     Route: 050
  2. ALTEPLASE. [Suspect]
     Active Substance: ALTEPLASE
     Indication: ISCHAEMIC STROKE
     Dosage: IV T-PA WAS USED WITHIN 4.5 HOURS AFTER STROKE ONSET FREQUENCY: 1, FREQUENCY UNIT: 809
     Route: 042

REACTIONS (1)
  - Reocclusion [Unknown]
